FAERS Safety Report 11468468 (Version 1)
Quarter: 2015Q3

REPORT INFORMATION
  Report Type: Spontaneous
  Country: US (occurrence: None)
  Receive Date: 20150904
  Receipt Date: 20150904
  Transmission Date: 20151125
  Serious: Yes (Hospitalization)
  Sender: FDA-Public Use
  Company Number: None

PATIENT
  Age: 83 Year
  Sex: Male
  Weight: 73.27 kg

DRUGS (3)
  1. VELCADE [Suspect]
     Active Substance: BORTEZOMIB
     Dates: end: 20150702
  2. RITUXIMAB (MOAB C2B8 LANTI CD20, CHIMERIC) [Suspect]
     Active Substance: RITUXIMAB
     Dates: start: 20150625
  3. BENDAMUSTINE HYDROCHLORIDE [Suspect]
     Active Substance: BENDAMUSTINE HYDROCHLORIDE
     Dates: end: 20150626

REACTIONS (9)
  - Asthenia [None]
  - Fatigue [None]
  - Memory impairment [None]
  - Slow response to stimuli [None]
  - Hypokalaemia [None]
  - Dyspnoea [None]
  - Diarrhoea [None]
  - Dizziness [None]
  - Urinary tract infection [None]

NARRATIVE: CASE EVENT DATE: 20150810
